FAERS Safety Report 5806856-X (Version None)
Quarter: 2008Q3

REPORT INFORMATION
  Report Type: 
  Country: None (occurrence: None)
  Receive Date: 20080711
  Receipt Date: 20080709
  Transmission Date: 20090109
  Serious: Yes (Other)
  Sender: FDA-Public Use
  Company Number: IE-BRISTOL-MYERS SQUIBB COMPANY-14160816

PATIENT
  Age: 37 Year
  Sex: Male

DRUGS (7)
  1. ATAZANAVIR SULFATE [Suspect]
     Indication: HIV INFECTION
     Dates: start: 20070101
  2. RITONAVIR [Suspect]
     Indication: HIV INFECTION
     Dates: start: 20070101
  3. METHADON HCL TAB [Suspect]
  4. NITRAZEPAM [Suspect]
     Dosage: 30 TABLETS TAKEN
  5. DIAZEPAM [Suspect]
  6. ABACAVIR [Concomitant]
     Dates: start: 20070101
  7. LAMIVUDINE [Concomitant]
     Dates: start: 20070101

REACTIONS (3)
  - ELECTROCARDIOGRAM QT PROLONGED [None]
  - OVERDOSE [None]
  - VENTRICULAR TACHYCARDIA [None]
